FAERS Safety Report 24755338 (Version 1)
Quarter: 2024Q4

REPORT INFORMATION
  Report Type: Spontaneous
  Country: RU (occurrence: RU)
  Receive Date: 20241219
  Receipt Date: 20241219
  Transmission Date: 20250115
  Serious: Yes (Life-Threatening)
  Sender: FRESENIUS KABI
  Company Number: RU-FreseniusKabi-FK202418716

PATIENT
  Age: 23 Year
  Sex: Female
  Weight: 55 kg

DRUGS (1)
  1. PROPOFOL [Suspect]
     Active Substance: PROPOFOL
     Indication: General anaesthesia
     Dosage: DOSE: 10 MG/ML?EMULSION FOR INTRAVENOUS?FREQUENCY: 1 TIME
     Route: 042
     Dates: start: 20240604, end: 20240604

REACTIONS (1)
  - Anaphylactic shock [Recovering/Resolving]

NARRATIVE: CASE EVENT DATE: 20240604
